FAERS Safety Report 10904170 (Version 1)
Quarter: 2015Q1

REPORT INFORMATION
  Report Type: Report from Study
  Country: US (occurrence: US)
  Receive Date: 20150311
  Receipt Date: 20150311
  Transmission Date: 20150721
  Serious: Yes (Death, Other)
  Sender: FDA-Public Use
  Company Number: US-GILEAD-2015-0141169

PATIENT
  Age: 57 Year
  Sex: Female

DRUGS (13)
  1. SILDENAFIL. [Concomitant]
     Active Substance: SILDENAFIL
  2. METHYL SALICYLATE [Concomitant]
     Active Substance: METHYL SALICYLATE
  3. TRAMADOL [Concomitant]
     Active Substance: TRAMADOL
  4. POTASSIUM [Concomitant]
     Active Substance: POTASSIUM
  5. CHROMIUM PICOLINATE [Concomitant]
     Active Substance: CHROMIUM PICOLINATE
  6. MAGNESIUM [Concomitant]
     Active Substance: MAGNESIUM
  7. ACIPHEX [Concomitant]
     Active Substance: RABEPRAZOLE SODIUM
  8. AMBRISENTAN [Suspect]
     Active Substance: AMBRISENTAN
     Indication: ILL-DEFINED DISORDER
     Dosage: 5 MG, QD
     Route: 065
     Dates: start: 20110531, end: 20150210
  9. DHEA [Concomitant]
     Active Substance: DEHYDROEPIANDROSTERONE-3-SULFATE SODIUM
  10. SYNTHROID [Concomitant]
     Active Substance: LEVOTHYROXINE SODIUM
  11. FORTEO [Concomitant]
     Active Substance: TERIPARATIDE
  12. ZINC [Concomitant]
     Active Substance: ZINC\ZINC CHLORIDE
  13. NIFEDICAL [Concomitant]

REACTIONS (1)
  - Death [Fatal]

NARRATIVE: CASE EVENT DATE: 20150210
